FAERS Safety Report 14221115 (Version 3)
Quarter: 2018Q2

REPORT INFORMATION
  Report Type: Spontaneous
  Country: US (occurrence: US)
  Receive Date: 20171124
  Receipt Date: 20180613
  Transmission Date: 20180711
  Serious: No
  Sender: FDA-Public Use
  Company Number: US-PFIZER INC-2017505138

PATIENT
  Age: 43 Year
  Sex: Female

DRUGS (4)
  1. DOCETAXEL. [Suspect]
     Active Substance: DOCETAXEL
     Dosage: 124 MG, EVERY 3 WEEKS
     Dates: start: 20130621, end: 20131004
  2. PARAPLATIN [Concomitant]
     Active Substance: CARBOPLATIN
  3. ATIVAN [Concomitant]
     Active Substance: LORAZEPAM
  4. ZOFRAN [Concomitant]
     Active Substance: ONDANSETRON HYDROCHLORIDE
     Dosage: UNK
     Dates: start: 2003

REACTIONS (5)
  - Madarosis [Recovered/Resolved]
  - Hair texture abnormal [Recovered/Resolved]
  - Hair colour changes [Recovered/Resolved]
  - Hair disorder [Recovered/Resolved]
  - Alopecia [Recovered/Resolved]

NARRATIVE: CASE EVENT DATE: 201404
